FAERS Safety Report 7214873-0 (Version None)
Quarter: 2011Q1

REPORT INFORMATION
  Report Type: 
  Country: None (occurrence: None)
  Receive Date: 20110107
  Receipt Date: 20100419
  Transmission Date: 20110831
  Serious: No
  Sender: FDA-Public Use
  Company Number: A0855677A

PATIENT
  Age: 83 Year

DRUGS (6)
  1. LOVAZA [Suspect]
     Dosage: 1G TWICE PER DAY
     Route: 048
     Dates: start: 20091214
  2. ACTONEL [Concomitant]
  3. CITRACAL [Concomitant]
  4. OSTEOBIFLEX [Concomitant]
  5. RAMIPRIL [Concomitant]
  6. VITAMIN D [Concomitant]

REACTIONS (1)
  - BLOOD GLUCOSE INCREASED [None]
